FAERS Safety Report 15680765 (Version 1)
Quarter: 2018Q4

REPORT INFORMATION
  Report Type: Spontaneous
  Country: US (occurrence: US)
  Receive Date: 20181120
  Receipt Date: 20181120
  Transmission Date: 20190205
  Serious: No
  Sender: FDA-Public Use
  Company Number: None

PATIENT
  Age: 64 Year
  Sex: Female

DRUGS (4)
  1. VERZENIO [Suspect]
     Active Substance: ABEMACICLIB
     Route: 048
     Dates: start: 20180913
  2. FASLODEX [Concomitant]
     Active Substance: FULVESTRANT
  3. ZOLPIDEM [Concomitant]
     Active Substance: ZOLPIDEM\ZOLPIDEM TARTRATE
  4. XGEVA [Concomitant]
     Active Substance: DENOSUMAB

REACTIONS (3)
  - Fatigue [None]
  - Constipation [None]
  - Hypopnoea [None]

NARRATIVE: CASE EVENT DATE: 20181119
